FAERS Safety Report 7349868-X (Version None)
Quarter: 2011Q1

REPORT INFORMATION
  Report Type: 
  Country: None (occurrence: None)
  Receive Date: 20110314
  Receipt Date: 20110308
  Transmission Date: 20110831
  Serious: Yes (Death, Hospitalization, Other)
  Sender: FDA-Public Use
  Company Number: TW-PFIZER INC-2010145478

PATIENT
  Age: 92 Year
  Sex: Male

DRUGS (1)
  1. SUTENT [Suspect]
     Indication: RENAL CELL CARCINOMA
     Dosage: 37.5 MG, 1X/DAY
     Dates: start: 20101015, end: 20101108

REACTIONS (5)
  - DYSPNOEA [None]
  - PLATELET COUNT DECREASED [None]
  - OCCULT BLOOD POSITIVE [None]
  - DEATH [None]
  - MUSCULAR WEAKNESS [None]
